FAERS Safety Report 6943983-8 (Version None)
Quarter: 2010Q3

REPORT INFORMATION
  Report Type: 
  Country: None (occurrence: None)
  Receive Date: 20100826
  Receipt Date: 20100819
  Transmission Date: 20110219
  Serious: Yes (Hospitalization)
  Sender: FDA-Public Use
  Company Number: JP-ABBOTT-10P-087-0665342-00

PATIENT
  Sex: Male

DRUGS (2)
  1. CLARITHROMYCIN [Suspect]
     Indication: TOOTH INFECTION
     Route: 048
     Dates: start: 20091215, end: 20100618
  2. CLARITHROMYCIN [Suspect]
     Indication: PROPHYLAXIS

REACTIONS (2)
  - BLISTER [None]
  - STOMATITIS [None]
